FAERS Safety Report 7424603-5 (Version None)
Quarter: 2011Q2

REPORT INFORMATION
  Report Type: 
  Country: None (occurrence: None)
  Receive Date: 20110419
  Receipt Date: 20110411
  Transmission Date: 20111010
  Serious: Yes (Hospitalization, Disabling, Other)
  Sender: FDA-Public Use
  Company Number: US-B.I. PHARMACEUTICALS,INC./RIDGEFIELD-2011-BP-02723BP

PATIENT
  Sex: Female

DRUGS (15)
  1. SYNTHROID [Concomitant]
     Indication: HYPOTHYROIDISM
  2. AMIODARONE HCL [Concomitant]
     Dosage: 200 MG
     Dates: start: 20101201
  3. LEVOTHYROXINE SODIUM [Concomitant]
     Dosage: 150 MCG
     Route: 048
  4. PRADAXA [Suspect]
     Indication: VENTRICULAR TACHYCARDIA
  5. LOPRESSOR [Concomitant]
     Indication: HYPERTENSION
  6. METOPROLOL SUCCINATE [Concomitant]
     Dosage: 100 MG
     Route: 048
  7. PLAVIX [Concomitant]
     Indication: MYOCARDIAL INFARCTION
     Dosage: 75 MG
     Dates: start: 20070101
  8. ASPIRIN [Concomitant]
     Indication: MYOCARDIAL INFARCTION
     Dosage: 325 MG
     Dates: start: 20070101
  9. LISINOPRIL AND HYDROCHLOROTHIAZIDE [Concomitant]
     Indication: HYPERTENSION
  10. FLEXERIL [Concomitant]
     Dosage: 30 MG
     Route: 048
  11. HUMULIN N [Concomitant]
     Indication: DIABETES MELLITUS
  12. HUMALOG R [Concomitant]
     Indication: DIABETES MELLITUS
  13. PRADAXA [Suspect]
     Indication: SUPRAVENTRICULAR TACHYCARDIA
  14. PRADAXA [Suspect]
     Indication: ATRIAL FIBRILLATION
     Dosage: 300 MG
     Route: 048
     Dates: start: 20110106
  15. MECLIZINE [Concomitant]
     Indication: DIZZINESS
     Dosage: 75 MG
     Route: 048

REACTIONS (5)
  - HEMIPARESIS [None]
  - VISUAL IMPAIRMENT [None]
  - SPEECH DISORDER [None]
  - TRANSIENT ISCHAEMIC ATTACK [None]
  - VIITH NERVE PARALYSIS [None]
